FAERS Safety Report 10839654 (Version 1)
Quarter: 2015Q1

REPORT INFORMATION
  Report Type: Report from Study
  Country: US (occurrence: US)
  Receive Date: 20150220
  Receipt Date: 20150220
  Transmission Date: 20150721
  Serious: Yes (Hospitalization, Other)
  Sender: FDA-Public Use
  Company Number: US-ABBVIE-14P-163-1233376-00

PATIENT
  Age: 23 Year
  Sex: Female

DRUGS (6)
  1. NEXIUM [Concomitant]
     Active Substance: ESOMEPRAZOLE MAGNESIUM
     Indication: COLITIS ULCERATIVE
     Dates: start: 20140527
  2. HUMIRA [Suspect]
     Active Substance: ADALIMUMAB
     Indication: COLITIS ULCERATIVE
     Dates: start: 201208, end: 201308
  3. REMICADE [Suspect]
     Active Substance: INFLIXIMAB
     Indication: COLITIS ULCERATIVE
  4. PERCOCET [Concomitant]
     Active Substance: ACETAMINOPHEN\OXYCODONE HYDROCHLORIDE
     Indication: PAIN
     Dosage: 10/325
  5. HUMIRA [Suspect]
     Active Substance: ADALIMUMAB
     Dates: start: 20140505
  6. PROTONIX [Concomitant]
     Active Substance: PANTOPRAZOLE SODIUM
     Indication: COLITIS ULCERATIVE

REACTIONS (13)
  - Colitis ulcerative [Recovered/Resolved]
  - Diarrhoea haemorrhagic [Recovered/Resolved]
  - Abdominal pain [Recovered/Resolved]
  - Colitis ulcerative [Recovered/Resolved]
  - Infection [Recovered/Resolved]
  - Abdominal pain [Unknown]
  - Dyspnoea [Unknown]
  - Nausea [Unknown]
  - Malaise [Unknown]
  - Colitis ulcerative [Recovered/Resolved]
  - Rash [Unknown]
  - Rheumatoid arthritis [Unknown]
  - Vomiting [Unknown]

NARRATIVE: CASE EVENT DATE: 201301
